FAERS Safety Report 22661855 (Version 1)
Quarter: 2023Q2

REPORT INFORMATION
  Report Type: Spontaneous
  Country: AR (occurrence: AR)
  Receive Date: 20230630
  Receipt Date: 20230630
  Transmission Date: 20230722
  Serious: Yes (Hospitalization, Other)
  Sender: FDA-Public Use
  Company Number: AR-ALXN-A202308430

PATIENT
  Age: 23 Year
  Sex: Male

DRUGS (1)
  1. SOLIRIS [Suspect]
     Active Substance: ECULIZUMAB
     Indication: Atypical haemolytic uraemic syndrome
     Dosage: 1200 MG, UNK
     Route: 065

REACTIONS (5)
  - Atypical haemolytic uraemic syndrome [Recovering/Resolving]
  - Condition aggravated [Recovering/Resolving]
  - Renal failure [Recovering/Resolving]
  - Influenza [Recovering/Resolving]
  - Product dose omission issue [Unknown]
